FAERS Safety Report 11605127 (Version 2)
Quarter: 2015Q4

REPORT INFORMATION
  Report Type: Spontaneous
  Country: US (occurrence: US)
  Receive Date: 20151007
  Receipt Date: 20151124
  Transmission Date: 20160304
  Serious: No
  Sender: FDA-Public Use
  Company Number: US-PFIZER INC-2015319580

PATIENT
  Age: 84 Year
  Sex: Female

DRUGS (2)
  1. IBRANCE [Suspect]
     Active Substance: PALBOCICLIB
     Indication: BREAST CANCER RECURRENT
     Dosage: 125 MG, CYCLIC(DAILY X 21 DAYS OFF 7 DAYS)
     Dates: start: 201506
  2. LETROZOLE. [Concomitant]
     Active Substance: LETROZOLE
     Dosage: 25 MG, DAILY
     Dates: start: 201506

REACTIONS (2)
  - Breast cancer recurrent [Recovered/Resolved]
  - Disease progression [Recovered/Resolved]

NARRATIVE: CASE EVENT DATE: 201506
